FAERS Safety Report 14764676 (Version 1)
Quarter: 2018Q2

REPORT INFORMATION
  Report Type: Report from Study
  Country: US (occurrence: US)
  Receive Date: 20180416
  Receipt Date: 20180416
  Transmission Date: 20180711
  Serious: Yes (Death, Hospitalization)
  Sender: FDA-Public Use
  Company Number: US-JNJFOC-20171115302

PATIENT
  Sex: Female

DRUGS (14)
  1. IMBRUVICA [Suspect]
     Active Substance: IBRUTINIB
     Indication: CHRONIC LYMPHOCYTIC LEUKAEMIA
     Route: 048
     Dates: start: 20170425
  2. DOXAZOSIN [Concomitant]
     Active Substance: DOXAZOSIN\DOXAZOSIN MESYLATE
  3. ACYCLOVIR. [Concomitant]
     Active Substance: ACYCLOVIR
  4. IMBRUVICA [Suspect]
     Active Substance: IBRUTINIB
     Indication: CHRONIC LYMPHOCYTIC LEUKAEMIA
     Route: 048
     Dates: start: 20170509, end: 2017
  5. LIPITOR [Concomitant]
     Active Substance: ATORVASTATIN CALCIUM
  6. NEXIUM [Concomitant]
     Active Substance: ESOMEPRAZOLE MAGNESIUM
  7. IMBRUVICA [Suspect]
     Active Substance: IBRUTINIB
     Indication: CHRONIC LYMPHOCYTIC LEUKAEMIA
     Route: 048
     Dates: start: 20170501, end: 2017
  8. SYNTHROID [Concomitant]
     Active Substance: LEVOTHYROXINE SODIUM
  9. ZYRTEC [Concomitant]
     Active Substance: CETIRIZINE HYDROCHLORIDE
  10. CYANOCOBALAMIN. [Concomitant]
     Active Substance: CYANOCOBALAMIN
  11. FOLIC ACID. [Concomitant]
     Active Substance: FOLIC ACID
  12. PHENERGAN [Concomitant]
     Active Substance: PROMETHAZINE HYDROCHLORIDE
  13. ALLOPURINOL. [Concomitant]
     Active Substance: ALLOPURINOL
  14. ULTRAM [Concomitant]
     Active Substance: TRAMADOL HYDROCHLORIDE

REACTIONS (3)
  - Ecchymosis [Recovering/Resolving]
  - Pulmonary embolism [Fatal]
  - Malaise [Unknown]
